FAERS Safety Report 12935495 (Version 2)
Quarter: 2016Q4

REPORT INFORMATION
  Report Type: Spontaneous
  Country: US (occurrence: US)
  Receive Date: 20161114
  Receipt Date: 20161209
  Transmission Date: 20170207
  Serious: No
  Sender: FDA-Public Use
  Company Number: US-009507513-1611USA004479

PATIENT
  Age: 69 Year
  Sex: Male

DRUGS (3)
  1. HEXADROL [Suspect]
     Active Substance: DEXAMETHASONE
     Indication: VERTEBRAL FORAMINAL STENOSIS
     Dosage: TRANSFORAMINAL EPIDURAL STEROID INJECTION CONSISTING OF 1% LIDOCAINE AND 1 ML DEXAMETHASONE
  2. HEXADROL [Suspect]
     Active Substance: DEXAMETHASONE
     Dosage: TRANSFORAMINAL EPIDURAL STEROID INJECTION CONSISTING OF 1% LIDOCAINE AND 1 ML DEXAMETHASONE
  3. LIDOCAINE. [Suspect]
     Active Substance: LIDOCAINE
     Indication: VERTEBRAL FORAMINAL STENOSIS
     Dosage: TRANSFORAMINAL EPIDURAL STEROID INJECTION CONSISTING OF 1% LIDOCAINE AND 1 ML DEXAMETHASONE

REACTIONS (1)
  - Hiccups [Recovered/Resolved]
